FAERS Safety Report 4651070-7 (Version None)
Quarter: 2005Q2

REPORT INFORMATION
  Report Type: 
  Country: None (occurrence: None)
  Receive Date: 20050503
  Receipt Date: 20050425
  Transmission Date: 20051028
  Serious: Yes (Other)
  Sender: FDA-Public Use
  Company Number: PHFR2005GB01638

PATIENT
  Sex: Female

DRUGS (2)
  1. RANITIDINE [Concomitant]
     Indication: DYSPEPSIA
     Dosage: 300MG/DAY
     Route: 048
  2. NORETHINDRONE ACETATE [Suspect]
     Indication: MENORRHAGIA
     Dosage: 15MG/DAY
     Route: 048
     Dates: start: 20050101, end: 20050317

REACTIONS (1)
  - CHOLESTASIS [None]
